FAERS Safety Report 20502184 (Version 1)
Quarter: 2022Q1

REPORT INFORMATION
  Report Type: Spontaneous
  Country: US (occurrence: None)
  Receive Date: 20220219
  Receipt Date: 20220219
  Transmission Date: 20220423
  Serious: Yes (Other)
  Sender: FDA-Public Use
  Company Number: None

PATIENT
  Age: 79 Year
  Sex: Female
  Weight: 49.95 kg

DRUGS (7)
  1. PERMETHRIN [Suspect]
     Active Substance: PERMETHRIN
     Indication: Acarodermatitis
     Route: 061
     Dates: start: 20220131, end: 20220208
  2. INSULIN NOS [Concomitant]
     Active Substance: INSULIN NOS
  3. ARMOUR THYROID [Concomitant]
     Active Substance: THYROID, PORCINE
  4. budesonide nebulizer solution [Concomitant]
  5. VITAMINS [Concomitant]
     Active Substance: VITAMINS
  6. MOTRIN [Concomitant]
     Active Substance: IBUPROFEN
  7. eye drops for dry eyes [Concomitant]

REACTIONS (2)
  - Blood glucose increased [None]
  - Dysphonia [None]

NARRATIVE: CASE EVENT DATE: 20220202
